FAERS Safety Report 6967118-0 (Version None)
Quarter: 2010Q3

REPORT INFORMATION
  Report Type: 
  Country: None (occurrence: None)
  Receive Date: 20100907
  Receipt Date: 20100824
  Transmission Date: 20110219
  Serious: No
  Sender: FDA-Public Use
  Company Number: US-JNJFOC-20100808690

PATIENT
  Sex: Male
  Weight: 130.64 kg

DRUGS (13)
  1. DURAGESIC-100 [Suspect]
     Indication: BACK PAIN
     Route: 062
  2. DURAGESIC-100 [Suspect]
     Route: 062
  3. DILAUDID [Concomitant]
     Dosage: 8MG ONCE EVERY 4- 6 HOURS AS NEEDED
     Route: 048
  4. GLIPIZIDE [Concomitant]
     Indication: DIABETES MELLITUS
     Route: 048
  5. DEPAKOTE [Concomitant]
     Indication: BIPOLAR DISORDER
     Route: 048
  6. ABILIFY [Concomitant]
     Indication: BIPOLAR DISORDER
     Route: 048
  7. VYTORIN [Concomitant]
     Indication: BLOOD CHOLESTEROL
     Dosage: 10/40MG TABLET DAILY ORAL
     Route: 048
  8. ELAVIL [Concomitant]
     Indication: SLEEP DISORDER
     Route: 048
  9. LYRICA [Concomitant]
     Indication: PAIN
     Route: 048
  10. FUROSEMIDE [Concomitant]
     Indication: FLUID RETENTION
     Route: 048
  11. MULTI-VITAMINS [Concomitant]
     Indication: NUTRITIONAL SUPPORT
     Route: 048
  12. CALCIUM [Concomitant]
     Indication: NUTRITIONAL SUPPORT
     Route: 048
  13. OXYCONTIN [Concomitant]
     Indication: PAIN
     Route: 048

REACTIONS (3)
  - BACK PAIN [None]
  - PRODUCT ADHESION ISSUE [None]
  - WRONG TECHNIQUE IN DRUG USAGE PROCESS [None]
